FAERS Safety Report 8289436-9 (Version None)
Quarter: 2012Q1

REPORT INFORMATION
  Report Type: 
  Country: None (occurrence: None)
  Receive Date: 20120316
  Receipt Date: 20090708
  Transmission Date: 20120608
  Serious: Yes (Other)
  Sender: FDA-Public Use
  Company Number: PHEH2009US07259

PATIENT
  Age: 86 Year
  Sex: Female

DRUGS (5)
  1. CARVEDILOL [Concomitant]
  2. BENICAR [Concomitant]
  3. CLONIDINE [Concomitant]
  4. LOVASTATIN [Concomitant]
  5. TEKTURNA [Suspect]
     Indication: HYPERTENSION
     Dosage: 150 MG, UNK 75 MG UNK

REACTIONS (1)
  - BLOOD PRESSURE DECREASED [None]
